FAERS Safety Report 18472595 (Version 1)
Quarter: 2020Q4

REPORT INFORMATION
  Report Type: Spontaneous
  Country: US (occurrence: US)
  Receive Date: 20201104
  Receipt Date: 20201104
  Transmission Date: 20210114
  Serious: Yes (Other)
  Sender: FDA-Public Use
  Company Number: None

PATIENT
  Age: 44 Year
  Sex: Male
  Weight: 86.5 kg

DRUGS (74)
  1. ACETAMINOPHEN ES [Concomitant]
  2. ALBUMIN 25% [Concomitant]
     Active Substance: ALBUMIN HUMAN
  3. AZITHROMYCIN ANHYDROUS. [Concomitant]
     Active Substance: AZITHROMYCIN ANHYDROUS
  4. CEFTAZIDIME. [Concomitant]
     Active Substance: CEFTAZIDIME
  5. ENOXAPARIN [Concomitant]
     Active Substance: ENOXAPARIN
  6. ETOMIDATE. [Concomitant]
     Active Substance: ETOMIDATE
  7. FOSPHENYTOIN PE [Concomitant]
  8. MEROPENEM. [Concomitant]
     Active Substance: MEROPENEM
  9. POLYETHYLENE GLYC (MIRALAX) [Concomitant]
  10. ROCURONIUM [Concomitant]
     Active Substance: ROCURONIUM BROMIDE
  11. SENNA [Concomitant]
     Active Substance: SENNA LEAF\SENNOSIDES\SENNOSIDES A AND B
  12. CHLORHEXIDINE 0.12% ORAL RINSE [Suspect]
     Active Substance: CHLORHEXIDINE
     Indication: INFECTION PROPHYLAXIS
     Route: 002
     Dates: start: 20200918, end: 20201028
  13. DEXTROSE, UNSPECIFIED FORM. [Concomitant]
     Active Substance: DEXTROSE, UNSPECIFIED FORM
  14. DEXAMETHASONE. [Concomitant]
     Active Substance: DEXAMETHASONE
  15. FUROSEMIDE. [Concomitant]
     Active Substance: FUROSEMIDE
  16. HYDROMORPHONE [Concomitant]
     Active Substance: HYDROMORPHONE
  17. LINEZOLID. [Concomitant]
     Active Substance: LINEZOLID
  18. METOCLOPRAMIDE. [Concomitant]
     Active Substance: METOCLOPRAMIDE
  19. MIDAZOLAM. [Concomitant]
     Active Substance: MIDAZOLAM
  20. MYCOPHENOLATE MOFETIL. [Concomitant]
     Active Substance: MYCOPHENOLATE MOFETIL
  21. CEFTRIAXONE. [Concomitant]
     Active Substance: CEFTRIAXONE
  22. DOCUSATE SOD [Concomitant]
  23. HEPARIN [Concomitant]
     Active Substance: HEPARIN SODIUM
  24. OCULAR LUBRICANT [Concomitant]
  25. PREMIX TITRATABLE DILUENT [Concomitant]
  26. CISATRACURIUM. [Concomitant]
     Active Substance: CISATRACURIUM
  27. D10W [Concomitant]
     Active Substance: DEXTROSE\WATER
  28. DEXMEDETOMIDINE. [Concomitant]
     Active Substance: DEXMEDETOMIDINE
  29. FOLIC ACID. [Concomitant]
     Active Substance: FOLIC ACID
  30. HALOPERIDOL. [Concomitant]
     Active Substance: HALOPERIDOL
  31. LABETALOL [Concomitant]
     Active Substance: LABETALOL\LABETALOL HYDROCHLORIDE
  32. LIDOCAINE 1% [Concomitant]
     Active Substance: LIDOCAINE
  33. METHYLPREDNIS SOD SUCC [Concomitant]
  34. MICAFUNGIN. [Concomitant]
     Active Substance: MICAFUNGIN SODIUM
  35. OXYCODONE IR (ROXICODONE) [Concomitant]
  36. SODIUM PHOSPHATE [Concomitant]
     Active Substance: SODIUM PHOSPHATE
  37. SODIUM ZIRCONLUM CYCLOSILICATE [Concomitant]
  38. TOCILIZUMAB. [Concomitant]
     Active Substance: TOCILIZUMAB
  39. VANCOMYCIN [Concomitant]
     Active Substance: VANCOMYCIN
  40. ALTEPLASE CATHFLO [Concomitant]
  41. CHLORHEXIDINE 0.12% [Concomitant]
  42. EPOPROSTENOL. [Concomitant]
     Active Substance: EPOPROSTENOL
  43. METOPROLOL. [Concomitant]
     Active Substance: METOPROLOL
  44. MINOCYCLINE [Concomitant]
     Active Substance: MINOCYCLINE HYDROCHLORIDE
  45. NICARDIPINE [Concomitant]
     Active Substance: NICARDIPINE
  46. NOREPINEPHRINE. [Concomitant]
     Active Substance: NOREPINEPHRINE
  47. PIPERACILL-TAZ (ZOSYN) [Concomitant]
  48. DEXTROSE 5% [Concomitant]
     Active Substance: DEXTROSE
  49. GLYCOPYRROLATE. [Concomitant]
     Active Substance: GLYCOPYRROLATE
  50. LANTUS [Concomitant]
     Active Substance: INSULIN GLARGINE
  51. LORAZEPAM. [Concomitant]
     Active Substance: LORAZEPAM
  52. MAGNESIUM SULFATE. [Concomitant]
     Active Substance: MAGNESIUM SULFATE
  53. MIDODRINE [Concomitant]
     Active Substance: MIDODRINE
  54. ONDANSETRON [Concomitant]
     Active Substance: ONDANSETRON
  55. QUETIAPINE. [Concomitant]
     Active Substance: QUETIAPINE
  56. ARTIFICIAL TEAR (LACRI-LUBE) [Concomitant]
  57. VIVALIRUDIN [Concomitant]
  58. CLONIDINE. [Concomitant]
     Active Substance: CLONIDINE
  59. D5-NS [Concomitant]
  60. DOXYCYCLINE HYCL [Concomitant]
  61. HYDROCODONE-CHLOR-POLI [Concomitant]
  62. MUPIROCIN 2% [Concomitant]
     Active Substance: MUPIROCIN
  63. NS EXCEL BAG [Concomitant]
  64. PROPOFOL. [Concomitant]
     Active Substance: PROPOFOL
  65. REMDESIVIR. [Concomitant]
     Active Substance: REMDESIVIR
  66. ACETAMINOPHEN. [Concomitant]
     Active Substance: ACETAMINOPHEN
  67. CEFEPIME [Concomitant]
     Active Substance: CEFEPIME HYDROCHLORIDE
  68. DIPHENHYDRAMINE. [Concomitant]
     Active Substance: DIPHENHYDRAMINE
  69. FAMOTIDINE. [Concomitant]
     Active Substance: FAMOTIDINE
  70. FENTANYL. [Concomitant]
     Active Substance: FENTANYL
  71. INFLUENZA VIRUS VACCINE (FLUARIX) [Concomitant]
  72. INSULIN LISPRO (HUMALOG) [Concomitant]
  73. PHENYTOIN. [Concomitant]
     Active Substance: PHENYTOIN
  74. SODRIUM CHLORIDE 0.5% [Concomitant]

REACTIONS (6)
  - Product contamination microbial [None]
  - Sputum culture positive [None]
  - Burkholderia cepacia complex infection [None]
  - Recalled product [None]
  - Bronchoalveolar lavage [None]
  - Suspected transmission of an infectious agent via product [None]

NARRATIVE: CASE EVENT DATE: 20201007
